FAERS Safety Report 9742625 (Version 2)
Quarter: 2015Q3

REPORT INFORMATION
  Report Type: Spontaneous
  Country: US (occurrence: US)
  Receive Date: 20131210
  Receipt Date: 20150804
  Transmission Date: 20151125
  Serious: Yes (Hospitalization)
  Sender: FDA-Public Use
  Company Number: US-GILEAD-2009-0024822

PATIENT
  Age: 74 Year
  Sex: Female

DRUGS (14)
  1. GLYBURIDE. [Concomitant]
     Active Substance: GLYBURIDE
  2. ASA LOW STR [Concomitant]
  3. ZOCOR [Concomitant]
     Active Substance: SIMVASTATIN
  4. WELLBUTRIN TAB XL [Concomitant]
  5. SYMBICORT AER [Concomitant]
  6. LASIX [Concomitant]
     Active Substance: FUROSEMIDE
  7. XOPENEX NEB [Concomitant]
  8. REVATIO [Suspect]
     Active Substance: SILDENAFIL CITRATE
     Route: 048
  9. LETAIRIS [Suspect]
     Active Substance: AMBRISENTAN
     Indication: PULMONARY ARTERIAL HYPERTENSION
     Route: 048
     Dates: start: 20080513, end: 20090928
  10. CYMBALTA [Concomitant]
     Active Substance: DULOXETINE HYDROCHLORIDE
  11. CARTIA XT [Concomitant]
     Active Substance: DILTIAZEM HYDROCHLORIDE
  12. XANAX [Concomitant]
     Active Substance: ALPRAZOLAM
  13. VITAMIN B12 [Concomitant]
     Active Substance: CYANOCOBALAMIN
  14. SPIRIVA [Concomitant]
     Active Substance: TIOTROPIUM BROMIDE MONOHYDRATE

REACTIONS (1)
  - Oedema [Recovering/Resolving]

NARRATIVE: CASE EVENT DATE: 20090928
